FAERS Safety Report 14267703 (Version 1)
Quarter: 2017Q4

REPORT INFORMATION
  Report Type: Spontaneous
  Country: US (occurrence: US)
  Receive Date: 20171211
  Receipt Date: 20171211
  Transmission Date: 20180321
  Serious: No
  Sender: FDA-Public Use
  Company Number: US-ROCHE-1982153

PATIENT
  Age: 3 Year
  Sex: Male

DRUGS (8)
  1. VALIUM [Suspect]
     Active Substance: DIAZEPAM
     Indication: MUSCLE SPASMS
     Dosage: 1 MG/ML
     Route: 048
  2. MOTRIN [Concomitant]
     Active Substance: IBUPROFEN
     Dosage: 20MG/ML
     Route: 065
  3. FISH OIL [Concomitant]
     Active Substance: FISH OIL
     Route: 048
  4. HYTONE OINTMENT 2.5% [Concomitant]
     Route: 065
  5. CHOLECALCIFEROL [Concomitant]
     Active Substance: CHOLECALCIFEROL
  6. SENOKOT [Concomitant]
     Active Substance: SENNOSIDES
     Dosage: 8.8 MG/5ML  SYRUP
     Route: 048
  7. OXYCODONE [Concomitant]
     Active Substance: OXYCODONE
     Route: 065
  8. KENALOG [Concomitant]
     Active Substance: TRIAMCINOLONE ACETONIDE
     Route: 065

REACTIONS (5)
  - Blood glucose decreased [Unknown]
  - Anxiety [Unknown]
  - Rash [Unknown]
  - Insulin-like growth factor decreased [Unknown]
  - Sleep disorder [Unknown]

NARRATIVE: CASE EVENT DATE: 20170503
